FAERS Safety Report 7964054-8 (Version None)
Quarter: 2011Q4

REPORT INFORMATION
  Report Type: 
  Country: None (occurrence: None)
  Receive Date: 20111208
  Receipt Date: 20111202
  Transmission Date: 20120403
  Serious: Yes (Other)
  Sender: FDA-Public Use
  Company Number: US-BAYER-2011-116169

PATIENT
  Sex: Female

DRUGS (1)
  1. CLIMARA [Suspect]

REACTIONS (2)
  - VAGINAL HAEMORRHAGE [None]
  - APPLICATION SITE RASH [None]
